FAERS Safety Report 9638325 (Version 2)
Quarter: 2014Q1

REPORT INFORMATION
  Report Type: Spontaneous
  Country: GB (occurrence: GB)
  Receive Date: 20131022
  Receipt Date: 20140106
  Transmission Date: 20141002
  Serious: Yes (Death)
  Sender: FDA-Public Use
  Company Number: GB-ASTRAZENECA-2013SE77365

PATIENT
  Age: 70 Year
  Sex: Female

DRUGS (9)
  1. FASLODEX [Suspect]
     Indication: BREAST CANCER METASTATIC
     Route: 030
     Dates: start: 20130923
  2. METFORMIN [Concomitant]
  3. AMLODIPINE [Concomitant]
     Route: 048
  4. PACLITAXEL [Concomitant]
     Indication: CHEMOTHERAPY
     Route: 042
  5. ASPIRIN [Concomitant]
     Route: 048
  6. ATORVASTATIN [Concomitant]
     Route: 048
  7. BISOPROLOL [Concomitant]
     Route: 048
  8. FUROSEMIDE [Concomitant]
     Route: 048
  9. RAMIPRIL [Concomitant]
     Route: 048

REACTIONS (3)
  - Acute hepatic failure [Fatal]
  - Hypertensive heart disease [Fatal]
  - Hepatic steatosis [Fatal]
